FAERS Safety Report 16360639 (Version 3)
Quarter: 2019Q3

REPORT INFORMATION
  Report Type: Report from Study
  Country: US (occurrence: US)
  Receive Date: 20190528
  Receipt Date: 20190729
  Transmission Date: 20191004
  Serious: Yes (Death, Hospitalization, Other)
  Sender: FDA-Public Use
  Company Number: US-ASTELLAS-2019US022358

PATIENT
  Sex: Male

DRUGS (3)
  1. ENZALUTAMIDE [Suspect]
     Active Substance: ENZALUTAMIDE
     Dosage: 80 MG (2 PILLS), ONCE DAILY
     Route: 065
     Dates: start: 201904
  2. ENZALUTAMIDE [Suspect]
     Active Substance: ENZALUTAMIDE
     Indication: PROSTATE CANCER METASTATIC
     Route: 065
  3. ENZALUTAMIDE [Suspect]
     Active Substance: ENZALUTAMIDE
     Route: 065
     Dates: start: 20190424, end: 20190522

REACTIONS (15)
  - Hypoxia [Fatal]
  - Oropharyngeal pain [Recovered/Resolved]
  - Asthenia [Recovered/Resolved]
  - Malignant neoplasm progression [Fatal]
  - Cardiac failure [Fatal]
  - Personality change [Recovered/Resolved]
  - Decreased appetite [Recovered/Resolved]
  - Hypotension [Fatal]
  - Myocardial infarction [Unknown]
  - Pleural effusion [Unknown]
  - Hypoaesthesia [Recovered/Resolved]
  - Vomiting [Recovered/Resolved]
  - Confusional state [Recovered/Resolved]
  - General physical health deterioration [Unknown]
  - Weight decreased [Recovered/Resolved]
